FAERS Safety Report 8161377-7 (Version None)
Quarter: 2012Q1

REPORT INFORMATION
  Report Type: 
  Country: None (occurrence: None)
  Receive Date: 20120224
  Receipt Date: 20120215
  Transmission Date: 20120608
  Serious: Yes (Other)
  Sender: FDA-Public Use
  Company Number: BR-JNJFOC-20120208875

PATIENT
  Age: 48 Year
  Sex: Female
  Weight: 80 kg

DRUGS (2)
  1. RISPERDAL [Suspect]
     Indication: DEPRESSION
     Route: 048
     Dates: start: 20000101, end: 20120215
  2. APRAZ [Concomitant]
     Indication: SLEEP DISORDER THERAPY
     Route: 048

REACTIONS (5)
  - CHEST DISCOMFORT [None]
  - SOMNOLENCE [None]
  - MEDICATION ERROR [None]
  - BLOOD PROLACTIN INCREASED [None]
  - PITUITARY TUMOUR [None]
